FAERS Safety Report 17684701 (Version 1)
Quarter: 2020Q2

REPORT INFORMATION
  Report Type: Spontaneous
  Country: US (occurrence: US)
  Receive Date: 20200417
  Receipt Date: 20200417
  Transmission Date: 20200714
  Serious: Yes (Hospitalization)
  Sender: FDA-Public Use
  Company Number: None

PATIENT
  Age: 71 Year
  Sex: Male
  Weight: 96.62 kg

DRUGS (2)
  1. DABIGATRAN (DABIGATRAN ETEXILATE 150MG CAP.ORAL) [Suspect]
     Active Substance: DABIGATRAN
     Indication: ATRIAL FIBRILLATION
     Route: 048
     Dates: end: 20180213
  2. DABIGATRAN (DABIGATRAN ETEXILATE 150MG CAP.ORAL) [Suspect]
     Active Substance: DABIGATRAN
     Indication: MITRAL VALVE REPLACEMENT
     Route: 048
     Dates: end: 20180213

REACTIONS (12)
  - Faeces discoloured [None]
  - Refusal of treatment by patient [None]
  - Gastritis erosive [None]
  - Cerebrovascular accident [None]
  - Oesophagogastroscopy abnormal [None]
  - Facial paralysis [None]
  - Embolic stroke [None]
  - Haemorrhage [None]
  - Haemoglobin decreased [None]
  - Dysarthria [None]
  - Therapy interrupted [None]
  - Gastric ulcer [None]
